FAERS Safety Report 26123852 (Version 1)
Quarter: 2025Q4

REPORT INFORMATION
  Report Type: Spontaneous
  Country: CN (occurrence: CN)
  Receive Date: 20251205
  Receipt Date: 20251205
  Transmission Date: 20260117
  Serious: Yes (Hospitalization, Other)
  Sender: STRIDES
  Company Number: CN-STRIDES ARCOLAB LIMITED-2025SP015155

PATIENT
  Age: 81 Year
  Sex: Male

DRUGS (6)
  1. MYCOPHENOLATE MOFETIL [Suspect]
     Active Substance: MYCOPHENOLATE MOFETIL
     Indication: Gastric cancer stage IV
     Dosage: 0.5-0.75 MG BID
     Route: 048
     Dates: start: 2024, end: 20241004
  2. MYCOPHENOLATE MOFETIL [Suspect]
     Active Substance: MYCOPHENOLATE MOFETIL
     Indication: Metastases to liver
  3. HUMAN IMMUNOGLOBULIN G [Suspect]
     Active Substance: HUMAN IMMUNOGLOBULIN G
     Indication: Gastric cancer stage IV
     Dosage: 10 MILLIGRAM, QD
     Route: 042
     Dates: start: 202409, end: 20241004
  4. HUMAN IMMUNOGLOBULIN G [Suspect]
     Active Substance: HUMAN IMMUNOGLOBULIN G
     Indication: Metastases to liver
  5. METHYLPREDNISOLONE SODIUM SUCCINATE [Concomitant]
     Active Substance: METHYLPREDNISOLONE SODIUM SUCCINATE
     Indication: Gastric cancer stage IV
     Dosage: 120 MILLIGRAM, QD
     Route: 042
     Dates: start: 202409, end: 202409
  6. METHYLPREDNISOLONE SODIUM SUCCINATE [Concomitant]
     Active Substance: METHYLPREDNISOLONE SODIUM SUCCINATE
     Indication: Metastases to liver
     Dosage: GRADUALLY REDUCED OVER 4 WEEKS
     Route: 042
     Dates: start: 202409, end: 2024

REACTIONS (3)
  - Malignant neoplasm progression [Unknown]
  - Multiple organ dysfunction syndrome [Unknown]
  - Off label use [Unknown]

NARRATIVE: CASE EVENT DATE: 20240101
